FAERS Safety Report 10441343 (Version 1)
Quarter: 2014Q3

REPORT INFORMATION
  Report Type: Spontaneous
  Country: US (occurrence: None)
  Receive Date: 20140908
  Receipt Date: 20140908
  Transmission Date: 20150326
  Serious: Yes (Disabling, Other)
  Sender: FDA-Public Use
  Company Number: None

PATIENT
  Age: 76 Year
  Sex: Female

DRUGS (5)
  1. RAMIPRIL. [Concomitant]
     Active Substance: RAMIPRIL
  2. AMLODIPINE [Concomitant]
     Active Substance: AMLODIPINE BESYLATE
  3. CRESTOR [Suspect]
     Active Substance: ROSUVASTATIN CALCIUM
     Indication: BLOOD CHOLESTEROL
     Dosage: 5 MG 1 PILL AT BEDTIME MOUTH
     Route: 048
     Dates: end: 20140610
  4. VITAMIN D [Concomitant]
     Active Substance: CHOLECALCIFEROL
  5. VIT B [Concomitant]
     Active Substance: VITAMINS

REACTIONS (4)
  - Haemoglobin abnormal [None]
  - Peripheral swelling [None]
  - Muscle disorder [None]
  - Blood iron abnormal [None]
